FAERS Safety Report 26118338 (Version 1)
Quarter: 2025Q4

REPORT INFORMATION
  Report Type: Spontaneous
  Country: EU (occurrence: EU)
  Receive Date: 20251203
  Receipt Date: 20251203
  Transmission Date: 20260118
  Serious: Yes (Other)
  Sender: PFIZER
  Company Number: EU-PFM-2025-05571

PATIENT
  Age: 29 Year
  Sex: Female

DRUGS (8)
  1. BRAFTOVI [Suspect]
     Active Substance: ENCORAFENIB
     Indication: BRAF gene mutation
     Dosage: UNK
     Route: 065
     Dates: start: 202411, end: 202509
  2. BRAFTOVI [Suspect]
     Active Substance: ENCORAFENIB
     Indication: Neoplasm
  3. CETUXIMAB [Suspect]
     Active Substance: CETUXIMAB
     Indication: BRAF gene mutation
     Dosage: UNK
     Route: 065
     Dates: start: 202411, end: 202509
  4. CETUXIMAB [Suspect]
     Active Substance: CETUXIMAB
     Indication: Neoplasm
  5. FLUOROURACIL\IRINOTECAN\LEUCOVORIN [Suspect]
     Active Substance: FLUOROURACIL\IRINOTECAN\LEUCOVORIN
     Indication: BRAF gene mutation
     Dosage: UNK, UNK, CYCLIC
     Dates: start: 202510
  6. FLUOROURACIL\IRINOTECAN\LEUCOVORIN [Suspect]
     Active Substance: FLUOROURACIL\IRINOTECAN\LEUCOVORIN
     Indication: Neoplasm
  7. AFLIBERCEPT [Suspect]
     Active Substance: AFLIBERCEPT
     Indication: BRAF gene mutation
     Dosage: UNK UNK, CYCLIC
     Route: 065
     Dates: start: 202510
  8. AFLIBERCEPT [Suspect]
     Active Substance: AFLIBERCEPT
     Indication: Neoplasm

REACTIONS (12)
  - Neoplasm [Unknown]
  - Malignant neoplasm progression [Unknown]
  - Metastases to peritoneum [Unknown]
  - Metastases to liver [Unknown]
  - Metastatic neoplasm [Unknown]
  - Paraduodenal hernia [Unknown]
  - Hypertrichosis [Unknown]
  - Dry skin [Unknown]
  - Skin papilloma [Unknown]
  - Nausea [Unknown]
  - Fatigue [Unknown]
  - Abdominal pain [Unknown]

NARRATIVE: CASE EVENT DATE: 20250901
